FAERS Safety Report 13560342 (Version 2)
Quarter: 2017Q2

REPORT INFORMATION
  Report Type: Spontaneous
  Country: US (occurrence: US)
  Receive Date: 20170518
  Receipt Date: 20170607
  Transmission Date: 20170830
  Serious: Yes (Other)
  Sender: FDA-Public Use
  Company Number: US-TEVA-768882ACC

PATIENT
  Age: 44 Year
  Sex: Female
  Weight: 81.72 kg

DRUGS (2)
  1. BABY ASPIRIN [Concomitant]
     Active Substance: ASPIRIN
     Indication: SUPPLEMENTATION THERAPY
  2. PARAGARD T 380A [Suspect]
     Active Substance: COPPER
     Indication: CONTRACEPTION
     Dates: start: 20061113, end: 20170502

REACTIONS (3)
  - Intentional product use issue [Recovered/Resolved]
  - Device breakage [Recovered/Resolved with Sequelae]
  - Embedded device [Recovered/Resolved with Sequelae]

NARRATIVE: CASE EVENT DATE: 20170502
